FAERS Safety Report 10215993 (Version 1)
Quarter: 2014Q2

REPORT INFORMATION
  Report Type: Spontaneous
  Country: IT (occurrence: None)
  Receive Date: 20140602
  Receipt Date: 20140602
  Transmission Date: 20141212
  Serious: Yes (Other)
  Sender: FDA-Public Use
  Company Number: NL01PV14.36153

PATIENT
  Age: 47 Year
  Sex: Female

DRUGS (3)
  1. ZOLPIDEM [Suspect]
     Indication: INTENTIONAL OVERDOSE
     Dosage: TOTAL.
     Route: 048
     Dates: start: 20140324, end: 20140324
  2. ZOLOFT (SERTRALINE HYDROCHLORIDE) FILM-COATED TABLET [Suspect]
     Indication: INTENTIONAL OVERDOSE
     Dosage: TOTAL.
     Route: 048
     Dates: start: 20140324, end: 20140324
  3. TALOFEN (PROMAZINE HYDROCHLORIDE)ORAL DROPS, SOLUTION [Concomitant]

REACTIONS (3)
  - Confusional state [None]
  - Loss of consciousness [None]
  - Intentional overdose [None]
